FAERS Safety Report 19570898 (Version 2)
Quarter: 2022Q2

REPORT INFORMATION
  Report Type: Spontaneous
  Country: US (occurrence: US)
  Receive Date: 20210716
  Receipt Date: 20220512
  Transmission Date: 20220720
  Serious: No
  Sender: FDA-Public Use
  Company Number: US-PFIZER INC-2021729998

PATIENT
  Age: 73 Year

DRUGS (3)
  1. CELEBREX [Suspect]
     Active Substance: CELECOXIB
     Dosage: 200 MG
  2. PREMARIN [Suspect]
     Active Substance: ESTROGENS, CONJUGATED
     Dosage: 0625 MG
  3. PREMPRO [Suspect]
     Active Substance: ESTROGENS, CONJUGATED\MEDROXYPROGESTERONE ACETATE
     Dosage: UNK

REACTIONS (1)
  - Pain [Unknown]
